FAERS Safety Report 4954761-3 (Version None)
Quarter: 2006Q1

REPORT INFORMATION
  Report Type: 
  Country: None (occurrence: None)
  Receive Date: 20060322
  Receipt Date: 20060308
  Transmission Date: 20060701
  Serious: Yes (Hospitalization)
  Sender: FDA-Public Use
  Company Number: 2006034560

PATIENT
  Age: 51 Year
  Sex: Female

DRUGS (1)
  1. ZIPRASIDONE HCL [Suspect]
     Indication: PSYCHOTIC DISORDER
     Dosage: 80 MG (80 MG, DAILY),

REACTIONS (5)
  - BLOOD IMMUNOGLOBULIN E INCREASED [None]
  - COMPLEMENT FACTOR C3 INCREASED [None]
  - COMPLEMENT FACTOR C4 INCREASED [None]
  - LOCALISED OEDEMA [None]
  - OEDEMA PERIPHERAL [None]
